FAERS Safety Report 9434732 (Version 4)
Quarter: 2018Q3

REPORT INFORMATION
  Report Type: Report from Study
  Country: JP (occurrence: JP)
  Receive Date: 20130801
  Receipt Date: 20180717
  Transmission Date: 20181010
  Serious: Yes (Hospitalization, Other)
  Sender: FDA-Public Use
  Company Number: JP-PFIZER INC-2013218706

PATIENT
  Age: 51 Year
  Sex: Male

DRUGS (37)
  1. MYCOBUTIN [Suspect]
     Active Substance: RIFABUTIN
     Indication: MYCOBACTERIUM AVIUM COMPLEX INFECTION
     Dosage: 150 MG, 3X/WEEK
     Route: 048
     Dates: start: 20110305, end: 20111227
  2. ZITHROMAC 600MG [Suspect]
     Active Substance: AZITHROMYCIN
     Indication: MYCOBACTERIUM AVIUM COMPLEX INFECTION
     Dosage: 600 MG, DAILY
     Route: 048
     Dates: start: 20110305, end: 20111227
  3. VALIXA [Suspect]
     Active Substance: VALGANCICLOVIR
     Dosage: 450 MG, 2X/DAY
     Dates: start: 20111019, end: 20111125
  4. CEPHADOL [Concomitant]
     Active Substance: DIPHENIDOL HYDROCHLORIDE
     Indication: DIZZINESS
     Dosage: 25 MG, 3X/DAY
     Dates: start: 20110107, end: 20120128
  5. ZITHROMAC 250MG [Suspect]
     Active Substance: AZITHROMYCIN DIHYDRATE
     Indication: MYCOBACTERIUM AVIUM COMPLEX INFECTION
  6. BAKTAR [Suspect]
     Active Substance: SULFAMETHOXAZOLE\TRIMETHOPRIM
     Dosage: 1 DF, 1X/DAY
     Dates: start: 20110121, end: 20130227
  7. FOSAMAC [Suspect]
     Active Substance: ALENDRONATE SODIUM
     Indication: OSTEOPOROSIS
     Dosage: 35 MG, WEEKLY
     Dates: start: 20120815, end: 20130123
  8. TALION [Concomitant]
     Active Substance: BEPOTASTINE
     Indication: SEBORRHOEIC DERMATITIS
     Dosage: 10 MG, 2X/DAY
     Dates: start: 20110107, end: 20110218
  9. MYONAL [Concomitant]
     Active Substance: EPERISONE HYDROCHLORIDE
     Indication: BACK PAIN
     Dosage: 50 MG, 3X/DAY
     Dates: start: 20110126, end: 20110223
  10. LOXONIN [Concomitant]
     Active Substance: LOXOPROFEN SODIUM
     Indication: BACK PAIN
     Dosage: 60 MG, 3X/DAY
     Dates: start: 20110126, end: 20110323
  11. VALIXA [Suspect]
     Active Substance: VALGANCICLOVIR
     Dosage: 450 MG, 2X/DAY
     Dates: start: 20110219, end: 20110726
  12. VALIXA [Suspect]
     Active Substance: VALGANCICLOVIR
     Dosage: 450 MG, 2X/DAY
     Dates: start: 20120118, end: 20120222
  13. VFEND [Concomitant]
     Active Substance: VORICONAZOLE
     Indication: OESOPHAGEAL CANDIDIASIS
     Dosage: 100 MG, 2X/DAY
     Dates: start: 20110114, end: 20110119
  14. ENTERONON R [Concomitant]
     Indication: DIARRHOEA
     Dosage: 1 G, 3X/DAY
     Dates: start: 20110120, end: 20110218
  15. LOPEMIN [Concomitant]
     Active Substance: LOPERAMIDE HYDROCHLORIDE
     Indication: DIARRHOEA
     Dosage: 1 MG, 2X/DAY
     Dates: start: 20110122, end: 20110223
  16. ZITHROMAC 250MG [Suspect]
     Active Substance: AZITHROMYCIN DIHYDRATE
     Indication: OPPORTUNISTIC INFECTION PROPHYLAXIS
     Dosage: 500 MG, 2 TABLETS OF 250 MG, ONCE PER DAY
     Dates: start: 20111228, end: 20130123
  17. VALIXA [Suspect]
     Active Substance: VALGANCICLOVIR
     Dosage: 450 MG, 1X/DAY
     Dates: start: 20110727, end: 20110914
  18. VALIXA [Suspect]
     Active Substance: VALGANCICLOVIR
     Dosage: 900 MG, 2X/DAY
     Dates: start: 20110929, end: 20111004
  19. VALIXA [Suspect]
     Active Substance: VALGANCICLOVIR
     Dosage: 450 MG, 2X/DAY
     Dates: start: 20111209, end: 20111228
  20. BAKTAR [Suspect]
     Active Substance: SULFAMETHOXAZOLE\TRIMETHOPRIM
     Indication: INFECTION PROPHYLAXIS
     Dosage: 1 DF, 2X/DAY
     Dates: start: 20110107, end: 20110120
  21. ESANBUTOL [Suspect]
     Active Substance: ETHAMBUTOL HYDROCHLORIDE
     Dosage: 500 MG, 1X/DAY
     Dates: start: 20111228, end: 20130123
  22. NORVIR [Suspect]
     Active Substance: RITONAVIR
     Indication: HIV INFECTION
     Dosage: 100 MG, DAILY
     Dates: start: 20110121, end: 20130331
  23. SAWACILLIN [Concomitant]
     Active Substance: AMOXICILLIN
     Indication: INFECTION
     Dosage: 1000 MG, 3X/DAY
     Dates: start: 20110205, end: 20110215
  24. OMEPTOROL [Concomitant]
     Indication: NAUSEA
     Dosage: 20 MG, 1X/DAY
     Dates: start: 20110122, end: 20120128
  25. VALIXA [Suspect]
     Active Substance: VALGANCICLOVIR
     Indication: CYTOMEGALOVIRUS INFECTION
     Dosage: 900 MG, 2X/DAY
     Dates: start: 20110109, end: 20110218
  26. ESANBUTOL [Suspect]
     Active Substance: ETHAMBUTOL HYDROCHLORIDE
     Indication: MYCOBACTERIUM AVIUM COMPLEX INFECTION
     Dosage: 625 MG, DAILY
     Dates: start: 20110305, end: 20111227
  27. EPZICOM [Suspect]
     Active Substance: ABACAVIR SULFATE\LAMIVUDINE
     Indication: HIV INFECTION
     Dosage: 1 DF, 1X/DAY
     Dates: start: 20120111, end: 20150508
  28. RISUMIC [Concomitant]
     Active Substance: AMEZINIUM METILSULFATE
     Indication: HYPOTENSION
     Dosage: 10 MG, 2X/DAY
     Dates: start: 20110108, end: 20120127
  29. ALBUMIN TANNATE [Concomitant]
     Active Substance: ALBUMIN BOVINE\TANNIC ACID
     Indication: DIARRHOEA
     Dosage: 1 G, 3X/DAY
     Dates: start: 20110129, end: 20110220
  30. TRUVADA [Suspect]
     Active Substance: EMTRICITABINE\TENOFOVIR DISOPROXIL FUMARATE
     Indication: HIV INFECTION
     Dosage: 1 DF, DAILY
     Dates: start: 20110121, end: 20120110
  31. PREZISTANAIVE [Suspect]
     Active Substance: DARUNAVIR
     Indication: HIV INFECTION
     Dosage: 800 MG, 1X/DAY
     Dates: start: 20110121, end: 20130331
  32. ZITHROMAC 600MG [Suspect]
     Active Substance: AZITHROMYCIN
     Indication: OPPORTUNISTIC INFECTION PROPHYLAXIS
     Dosage: 1200 MG, WEEKLY
     Route: 048
     Dates: start: 20110107, end: 20110304
  33. BEZATOL SR [Suspect]
     Active Substance: BEZAFIBRATE
     Indication: HYPERLIPIDAEMIA
     Dosage: 200 MG, 2X/DAY
     Route: 048
     Dates: start: 20121212, end: 20130123
  34. FLUCONAZOLE. [Concomitant]
     Active Substance: FLUCONAZOLE
     Indication: OESOPHAGEAL CANDIDIASIS
     Dosage: 100 MG, 1X/DAY
     Dates: start: 20110120, end: 20110224
  35. SAWACILLIN [Concomitant]
     Active Substance: AMOXICILLIN
     Indication: SYPHILIS
     Dosage: 1000 MG, 3X/DAY
     Dates: start: 20110107, end: 20110203
  36. MAGLAX [Concomitant]
     Active Substance: MAGNESIUM OXIDE
     Indication: CONSTIPATION
     Dosage: 330 MG, 3X/DAY
     Dates: start: 20110110, end: 20110117
  37. NAUZELIN [Concomitant]
     Active Substance: DOMPERIDONE
     Indication: PROPHYLAXIS
     Dosage: 10 MG, 3X/DAY
     Route: 048
     Dates: start: 20110206, end: 20111114

REACTIONS (14)
  - Folate deficiency [Recovered/Resolved]
  - Periarthritis [Not Recovered/Not Resolved]
  - Cytopenia [Recovering/Resolving]
  - Renal impairment [Not Recovered/Not Resolved]
  - Hyperlipidaemia [Not Recovered/Not Resolved]
  - Diarrhoea [Recovering/Resolving]
  - Condition aggravated [Not Recovered/Not Resolved]
  - Lymphadenitis [Recovering/Resolving]
  - Mycobacterium avium complex infection [Recovering/Resolving]
  - Nausea [Recovering/Resolving]
  - Osteoporosis [Recovering/Resolving]
  - Pneumonia [Recovering/Resolving]
  - Back pain [Recovering/Resolving]
  - Hyperuricaemia [Recovering/Resolving]

NARRATIVE: CASE EVENT DATE: 2011
